FAERS Safety Report 9752164 (Version 1)
Quarter: 2013Q4

REPORT INFORMATION
  Report Type: Spontaneous
  Country: AU (occurrence: AU)
  Receive Date: 20131213
  Receipt Date: 20131213
  Transmission Date: 20140711
  Serious: Yes (Death)
  Sender: FDA-Public Use
  Company Number: AU-CELGENEUS-008-21660-13115719

PATIENT
  Sex: 0

DRUGS (2)
  1. ABRAXANE [Suspect]
     Indication: BREAST CANCER METASTATIC
     Route: 041
  2. PERTUZUMAB [Concomitant]
     Indication: BREAST CANCER METASTATIC
     Route: 065

REACTIONS (2)
  - Death [Fatal]
  - Onycholysis [Unknown]
